FAERS Safety Report 10734559 (Version 2)
Quarter: 2015Q1

REPORT INFORMATION
  Report Type: Report from Study
  Country: US (occurrence: US)
  Receive Date: 20150123
  Receipt Date: 20150123
  Transmission Date: 20150721
  Serious: No
  Sender: FDA-Public Use
  Company Number: US-AMGEN INC.-2013-1747

PATIENT
  Age: 74 Year
  Sex: Female

DRUGS (6)
  1. ZOMETA [Concomitant]
     Active Substance: ZOLEDRONIC ACID
     Indication: PROPHYLAXIS
     Dates: start: 20140227
  2. CYTOXAN [Concomitant]
     Active Substance: CYCLOPHOSPHAMIDE
     Indication: PLASMA CELL MYELOMA
     Dates: end: 20131004
  3. KYPROLIS [Suspect]
     Active Substance: CARFILZOMIB
     Dosage: FREQUENCY: 2 EVERY 2 WEEKS?
     Dates: start: 2014
  4. KYPROLIS [Suspect]
     Active Substance: CARFILZOMIB
     Indication: PLASMA CELL MYELOMA
     Route: 042
     Dates: start: 201305, end: 201308
  5. SULFAMETHOXAZOLE/TMP [Concomitant]
     Indication: PROPHYLAXIS
  6. KYPROLIS [Suspect]
     Active Substance: CARFILZOMIB
     Dates: start: 20140211, end: 2014

REACTIONS (3)
  - Fatigue [Not Recovered/Not Resolved]
  - Nasopharyngitis [Recovering/Resolving]
  - Nausea [Recovering/Resolving]

NARRATIVE: CASE EVENT DATE: 2013
